FAERS Safety Report 14619496 (Version 4)
Quarter: 2024Q3

REPORT INFORMATION
  Report Type: Spontaneous
  Country: DE (occurrence: DE)
  Receive Date: 20180309
  Receipt Date: 20240708
  Transmission Date: 20241017
  Serious: Yes (Life-Threatening, Other)
  Sender: AUROBINDO
  Company Number: None

PATIENT
  Age: 78 Year
  Sex: Male
  Weight: 64 kg

DRUGS (13)
  1. RAMIPRIL [Suspect]
     Active Substance: RAMIPRIL
     Indication: Hypertension
     Dosage: 150 MILLIGRAM
     Route: 048
  2. RAMIPRIL [Suspect]
     Active Substance: RAMIPRIL
     Dosage: 150 MILLIGRAM
     Route: 048
  3. AVASTIN [Suspect]
     Active Substance: BEVACIZUMAB
     Indication: Colon cancer metastatic
     Dosage: 487.5 MILLIGRAM
     Route: 042
     Dates: start: 20090224, end: 20090428
  4. AVASTIN [Suspect]
     Active Substance: BEVACIZUMAB
     Dosage: 3700 MILLIGRAM (WAS RECEIVED FROM DAY 1 UNTIL DAY 14 OF A CYCLE, LAST INTAKE WAS ON 11 MAY 2009)
     Route: 048
     Dates: start: 20090224
  5. AVASTIN [Suspect]
     Active Substance: BEVACIZUMAB
     Dosage: UNK
     Route: 042
     Dates: start: 20090428, end: 20090428
  6. AVASTIN [Suspect]
     Active Substance: BEVACIZUMAB
     Dosage: 487.5 MILLIGRAM (PATIENT RECEIVED A TOTAL OF 3 APPLICATIONS, ON DAY 1 OF A CYCLE RESPECTIVLY (MOST R
     Route: 042
     Dates: start: 20090407
  7. XELODA [Suspect]
     Active Substance: CAPECITABINE
     Indication: Colon cancer metastatic
     Dosage: 200 MILLIGRAM/SQ. METER
     Route: 048
  8. XELODA [Suspect]
     Active Substance: CAPECITABINE
     Dosage: 2500 MILLIGRAM/SQ. METER
     Route: 048
  9. XELODA [Suspect]
     Active Substance: CAPECITABINE
     Dosage: 2500 MILLIGRAM/SQ. METER (3700 MGWAS RECEIVED FROM DAY 1 UNTIL DAY 14 OF A CYCLE, LAST INTAKE WAS ON
     Route: 048
     Dates: start: 20090224
  10. ALIZAPRIDE HYDROCHLORIDE [Concomitant]
     Active Substance: ALIZAPRIDE HYDROCHLORIDE
     Indication: Prophylaxis
     Dosage: 150 MILLIGRAM
     Route: 048
  11. ALIZAPRIDE HYDROCHLORIDE [Concomitant]
     Active Substance: ALIZAPRIDE HYDROCHLORIDE
     Dosage: 150 MILLIGRAM
     Route: 048
  12. ASPIRIN [Concomitant]
     Active Substance: ASPIRIN
     Indication: Product used for unknown indication
     Dosage: 100 MILLIGRAM
     Route: 048
  13. ASPIRIN [Concomitant]
     Active Substance: ASPIRIN
     Dosage: 100 MILLIGRAM
     Route: 048

REACTIONS (3)
  - Proteinuria [Unknown]
  - Nephrotic syndrome [Not Recovered/Not Resolved]
  - Renal impairment [Unknown]

NARRATIVE: CASE EVENT DATE: 20090519
